FAERS Safety Report 25938298 (Version 2)
Quarter: 2025Q4

REPORT INFORMATION
  Report Type: Spontaneous
  Country: US (occurrence: US)
  Receive Date: 20251018
  Receipt Date: 20251023
  Transmission Date: 20260118
  Serious: No
  Sender: CALLIDITAS THERAPEUTICS AB
  Company Number: US-Calliditas-2025CAL02947

PATIENT
  Age: 53 Year
  Sex: Male

DRUGS (8)
  1. TARPEYO [Suspect]
     Active Substance: BUDESONIDE
     Indication: IgA nephropathy
     Route: 048
     Dates: start: 20250821
  2. ALLOPURINOL [Concomitant]
     Active Substance: ALLOPURINOL
  3. BIOTIN [Concomitant]
     Active Substance: BIOTIN
  4. FISH OIL [Concomitant]
     Active Substance: FISH OIL
  5. MAGNESIUM [Concomitant]
     Active Substance: MAGNESIUM
  6. MULTIVITAMINS WITH IRON [ASCORBIC ACID;CYANOCOBALAMIN;ERGOCALCIFERO... [Concomitant]
  7. NIFEDIPINE [Concomitant]
     Active Substance: NIFEDIPINE
  8. ZINC CHLORIDE [Concomitant]
     Active Substance: ZINC CHLORIDE

REACTIONS (5)
  - Muscle spasms [Not Recovered/Not Resolved]
  - Dizziness [Unknown]
  - Urticaria [Not Recovered/Not Resolved]
  - Acne [Not Recovered/Not Resolved]
  - Pruritus [Unknown]

NARRATIVE: CASE EVENT DATE: 20250913
